FAERS Safety Report 19626809 (Version 1)
Quarter: 2021Q3

REPORT INFORMATION
  Report Type: Spontaneous
  Country: CA (occurrence: CA)
  Receive Date: 20210729
  Receipt Date: 20210729
  Transmission Date: 20211014
  Serious: Yes (Life-Threatening, Hospitalization, Other)
  Sender: FDA-Public Use
  Company Number: CA-ALKEM LABORATORIES LIMITED-CA-ALKEM-2021-04728

PATIENT
  Age: 55 Year
  Sex: Female

DRUGS (3)
  1. MYCOPHENOLATE MOFETIL. [Suspect]
     Active Substance: MYCOPHENOLATE MOFETIL
     Indication: IMMUNOSUPPRESSANT DRUG THERAPY
     Dosage: 500 MILLIGRAM, BID
     Route: 065
  2. PREDNISONE. [Suspect]
     Active Substance: PREDNISONE
     Indication: IMMUNOSUPPRESSANT DRUG THERAPY
     Dosage: 5 MILLIGRAM, QD
     Route: 065
  3. CICLOSPORIN [Suspect]
     Active Substance: CYCLOSPORINE
     Indication: IMMUNOSUPPRESSANT DRUG THERAPY
     Dosage: 50 MILLIGRAM, BID
     Route: 065

REACTIONS (11)
  - Cryptococcosis [Unknown]
  - Depressed level of consciousness [Recovering/Resolving]
  - Myoclonus [Recovering/Resolving]
  - Pneumonia [Unknown]
  - Meningitis cryptococcal [Recovering/Resolving]
  - Cytomegalovirus infection [Unknown]
  - Acute respiratory failure [Unknown]
  - Disseminated cryptococcosis [Unknown]
  - Vasogenic cerebral oedema [Recovering/Resolving]
  - Diarrhoea [Unknown]
  - Meningism [Recovering/Resolving]
